FAERS Safety Report 5659102-4 (Version None)
Quarter: 2008Q1

REPORT INFORMATION
  Report Type: 
  Country: None (occurrence: None)
  Receive Date: 20080219
  Receipt Date: 20071127
  Transmission Date: 20080703
  Serious: No
  Sender: FDA-Public Use
  Company Number: WAES 0708USA05718

PATIENT
  Age: 84 Year
  Sex: Male
  Weight: 82.5547 kg

DRUGS (6)
  1. JANUVIA [Suspect]
     Indication: TYPE 2 DIABETES MELLITUS
     Dosage: 100 MG/DAILY/PO
     Route: 048
     Dates: start: 20070709, end: 20070829
  2. AMARYL [Concomitant]
  3. CASODEX [Concomitant]
  4. LIPITOR [Concomitant]
  5. LUPRON [Concomitant]
  6. LISINOPRIL [Concomitant]

REACTIONS (3)
  - ABDOMINAL PAIN [None]
  - DIZZINESS [None]
  - NAUSEA [None]
